FAERS Safety Report 8851063 (Version 1)
Quarter: 2012Q4

REPORT INFORMATION
  Report Type: 
  Country: US (occurrence: US)
  Receive Date: 20121019
  Receipt Date: 20121019
  Transmission Date: 20130627
  Serious: Yes (Hospitalization)
  Sender: FDA-Public Use
  Company Number: US-ELI_LILLY_AND_COMPANY-US201210003781

PATIENT
  Age: 70 Year
  Sex: Female

DRUGS (18)
  1. FORTEO [Suspect]
     Dosage: 20 ug, qd
  2. GABAPENTIN [Concomitant]
  3. DAPSONE [Concomitant]
  4. CARAFATE [Concomitant]
  5. GLUCOPHAGE [Concomitant]
  6. CHANTIX [Concomitant]
  7. COLACE [Concomitant]
  8. CYMBALTA [Concomitant]
  9. FLONASE [Concomitant]
  10. ADVAIR [Concomitant]
  11. METOPROLOL [Concomitant]
  12. ZANTAC [Concomitant]
  13. BABY ASPIRIN [Concomitant]
  14. LOSARTAN [Concomitant]
  15. PROTONIX [Concomitant]
  16. SPIRIVA [Concomitant]
  17. IBUPROFEN [Concomitant]
  18. PERCOCET [Concomitant]

REACTIONS (3)
  - Cervical dysplasia [Unknown]
  - Postmenopausal haemorrhage [Unknown]
  - Incorrect storage of drug [Unknown]
